FAERS Safety Report 5820083-1 (Version None)
Quarter: 2008Q3

REPORT INFORMATION
  Report Type: 
  Country: None (occurrence: None)
  Receive Date: 20080718
  Receipt Date: 20080718
  Transmission Date: 20090109
  Serious: Yes (Hospitalization)
  Sender: FDA-Public Use
  Company Number: None

PATIENT
  Sex: Female
  Weight: 58 kg

DRUGS (9)
  1. TEMOZOLOMIDE [Suspect]
     Dosage: 110 MG
  2. DEXAMETHASONE [Concomitant]
  3. DILANTIN [Concomitant]
  4. LISINOPRIL [Concomitant]
  5. METOPROLOL TARTRATE [Concomitant]
  6. NEURONTIN [Concomitant]
  7. NEXIUM [Concomitant]
  8. PREVACID [Concomitant]
  9. XANAX [Concomitant]

REACTIONS (2)
  - AMNESIA [None]
  - DEEP VEIN THROMBOSIS [None]
